FAERS Safety Report 24217521 (Version 5)
Quarter: 2024Q4

REPORT INFORMATION
  Report Type: Spontaneous
  Country: ES (occurrence: ES)
  Receive Date: 20240816
  Receipt Date: 20241009
  Transmission Date: 20250115
  Serious: Yes (Other)
  Sender: PFIZER
  Company Number: ES-ROCHE-3541345

PATIENT
  Age: 69 Year
  Sex: Male
  Weight: 91.1 kg

DRUGS (67)
  1. BEVACIZUMAB [Suspect]
     Active Substance: BEVACIZUMAB
     Indication: Hepatocellular carcinoma
     Dosage: 1445 MG, EVERY 3 WEEKS
     Route: 042
     Dates: start: 20240131
  2. BEVACIZUMAB [Suspect]
     Active Substance: BEVACIZUMAB
     Dosage: 1365 MG, EVERY 3 WEEKS, MOST RECENT DOSE OF DRUG PRIOR TO AE
     Route: 042
     Dates: start: 20240313
  3. ATEZOLIZUMAB [Suspect]
     Active Substance: ATEZOLIZUMAB
     Indication: Hepatocellular carcinoma
     Dosage: 1200 MG, EVERY 3 WEEKS
     Route: 042
     Dates: start: 20240131
  4. ATEZOLIZUMAB [Suspect]
     Active Substance: ATEZOLIZUMAB
     Dosage: 1200 MG, EVERY 3 WEEKS, MOST RECENT DOSE OF DRUG PRIOR TO AE
     Route: 042
     Dates: start: 20240313
  5. TIRAGOLUMAB [Suspect]
     Active Substance: TIRAGOLUMAB
     Indication: Hepatocellular carcinoma
     Dosage: 600 MG, EVERY 3 WEEKS
     Route: 042
     Dates: start: 20240131
  6. TIRAGOLUMAB [Suspect]
     Active Substance: TIRAGOLUMAB
     Dosage: 600 MG, EVERY 3 WEEKS
     Route: 042
     Dates: start: 20240313
  7. FISIOCREM [Concomitant]
     Indication: Dermatitis contact
     Dosage: 250 ML, 2X/DAY
     Route: 061
     Dates: start: 20240518, end: 20240521
  8. FISIOCREM [Concomitant]
     Dosage: 250 ML, 2X/DAY
     Route: 061
  9. AMIODARONE HYDROCHLORIDE [Concomitant]
     Active Substance: AMIODARONE HYDROCHLORIDE
     Dosage: 200 MG, ALTERNATE DAY
     Route: 048
     Dates: start: 20230918
  10. AMIODARONE HYDROCHLORIDE [Concomitant]
     Active Substance: AMIODARONE HYDROCHLORIDE
     Dosage: 200 MG, ALTERNATE DAY
     Route: 048
  11. ELIQUIS [Concomitant]
     Active Substance: APIXABAN
     Dosage: 5 MG, 2X/DAY
     Route: 048
     Dates: start: 20220321, end: 20240802
  12. ELIQUIS [Concomitant]
     Active Substance: APIXABAN
     Dosage: 5 MG, 2X/DAY
     Route: 048
     Dates: start: 20240809
  13. CHLORHEXIDINE [Concomitant]
     Active Substance: CHLORHEXIDINE
     Indication: Epistaxis
     Dosage: UNK, 1X/DAY
     Route: 048
     Dates: start: 20240527
  14. CHLORHEXIDINE [Concomitant]
     Active Substance: CHLORHEXIDINE
     Indication: Gingival bleeding
     Dosage: 0.12 %, 1X/DAY
     Route: 048
  15. AERIUS (DESLORATADINE) [Concomitant]
     Active Substance: DESLORATADINE
     Indication: Dermatitis contact
     Dosage: 5 MG, 1X/DAY
     Route: 048
     Dates: start: 20240521, end: 20240523
  16. BISOPROLOL FUMARATE [Concomitant]
     Active Substance: BISOPROLOL FUMARATE
     Dosage: 2.5 MG, 1X/DAY
     Route: 048
     Dates: start: 20220608
  17. BISOPROLOL FUMARATE [Concomitant]
     Active Substance: BISOPROLOL FUMARATE
     Dosage: 2.5 MG, 1X/DAY (GIVEN FOR PROPHYLAXIS IS YES  )
     Route: 048
  18. DIAZEPAM [Concomitant]
     Active Substance: DIAZEPAM
     Indication: Anxiety
     Dosage: 5 MG, 2X/DAY
     Route: 048
     Dates: start: 2007
  19. DIAZEPAM [Concomitant]
     Active Substance: DIAZEPAM
     Dosage: 5 MG, 2X/DAY
     Route: 048
  20. EBASTINE [Concomitant]
     Active Substance: EBASTINE
     Indication: Hypersensitivity
     Dosage: 20 MG, AS NEEDED
     Route: 048
     Dates: start: 20231219
  21. EBASTINE [Concomitant]
     Active Substance: EBASTINE
     Dosage: 20 MG, 1X/DAY
     Route: 048
     Dates: start: 20240304
  22. EBASTINE [Concomitant]
     Active Substance: EBASTINE
     Dosage: 20 MG
     Route: 048
  23. EMPAGLIFLOZIN [Concomitant]
     Active Substance: EMPAGLIFLOZIN
     Indication: Type 2 diabetes mellitus
     Dosage: 25 MG, 1X/DAY
     Route: 048
     Dates: start: 20221003
  24. ENOXAPARIN [Concomitant]
     Active Substance: ENOXAPARIN
     Dosage: UNK, 1X/DAY
     Route: 030
     Dates: start: 20240803, end: 20240805
  25. ENOXAPARIN [Concomitant]
     Active Substance: ENOXAPARIN
     Dosage: UNK, 1X/DAY
     Route: 030
  26. ENOXAPARIN [Concomitant]
     Active Substance: ENOXAPARIN
     Dosage: 80 MG, 1X/DAY
     Route: 030
     Dates: start: 20240803, end: 20240808
  27. EPINEPHRINE HYDROCHLORIDE [Concomitant]
     Active Substance: EPINEPHRINE HYDROCHLORIDE
     Indication: Gingival bleeding
     Dosage: 0.5 MG, AS NEEDED (LOTION)
     Route: 061
     Dates: start: 20240527
  28. EPINEPHRINE HYDROCHLORIDE [Concomitant]
     Active Substance: EPINEPHRINE HYDROCHLORIDE
     Indication: Epistaxis
     Dosage: 0.5 MG (LOTION)
     Route: 061
  29. EPLERENONE [Concomitant]
     Active Substance: EPLERENONE
     Dosage: 25 MG, 1X/DAY
     Route: 048
     Dates: start: 20211221
  30. EPLERENONE [Concomitant]
     Active Substance: EPLERENONE
     Dosage: 25 MG, 1X/DAY
     Route: 048
  31. EZETIMIBE [Concomitant]
     Active Substance: EZETIMIBE
     Indication: Dyslipidaemia
     Dosage: 10 MG, 1X/DAY
     Route: 048
     Dates: start: 20211221
  32. EZETIMIBE [Concomitant]
     Active Substance: EZETIMIBE
     Dosage: 10 MG, 1X/DAY
     Route: 048
  33. HYDROCORTISONE [Concomitant]
     Active Substance: HYDROCORTISONE
     Indication: Dermatitis contact
     Dosage: UNK, 1X/DAY
     Route: 061
     Dates: start: 20240524, end: 20240602
  34. HYDROCORTISONE [Concomitant]
     Active Substance: HYDROCORTISONE
     Dosage: UNK, 1X/DAY (DRUG DOSE FIRST ADMINISTERED IS 10 OTHER )
     Route: 061
     Dates: end: 20240602
  35. DUPHALAC [Concomitant]
     Active Substance: LACTULOSE
     Indication: Constipation
     Dosage: UNK, 3X/DAY
     Route: 048
     Dates: start: 20240118, end: 20240221
  36. MOVICOL [Concomitant]
     Active Substance: POLYETHYLENE GLYCOL 3350\POTASSIUM CHLORIDE\SODIUM BICARBONATE\SODIUM CHLORIDE
     Indication: Constipation
     Dosage: 13.13 G, FREQ: 0.5 DAY
     Route: 048
     Dates: start: 20240225, end: 20240227
  37. LEXXEMA [Concomitant]
     Indication: Dermatitis contact
     Dosage: 0.1 %, 2X/DAY
     Route: 061
     Dates: start: 20240521, end: 20240523
  38. LEXXEMA [Concomitant]
     Dosage: 0.1 %, 2X/DAY
     Route: 061
  39. MICONAZOLE NITRATE [Concomitant]
     Active Substance: MICONAZOLE NITRATE
     Indication: Dermatitis contact
     Dosage: UNK, 1X/DAY
     Route: 061
     Dates: start: 20240524, end: 20240602
  40. MICONAZOLE NITRATE [Concomitant]
     Active Substance: MICONAZOLE NITRATE
     Dosage: UNK, 1X/DAY (DRUG DOSE FIRST ADMINISTERED IS 20 OTHER  )
     Route: 061
  41. MORPHINE SULFATE [Concomitant]
     Active Substance: MORPHINE SULFATE
     Indication: Abdominal pain upper
     Dosage: 10 MG, 1X/DAY
     Route: 048
     Dates: start: 20240619, end: 20240620
  42. NAPHAZOLINE [Concomitant]
     Active Substance: NAPHAZOLINE\NAPHAZOLINE HYDROCHLORIDE
     Indication: Gingival bleeding
     Dosage: 0.5 MG, AS NEEDED
     Route: 061
     Dates: start: 20240527
  43. NAPHAZOLINE [Concomitant]
     Active Substance: NAPHAZOLINE\NAPHAZOLINE HYDROCHLORIDE
     Indication: Epistaxis
     Dosage: 0.5 MG
     Route: 061
  44. PANTOPRAZOLE [Concomitant]
     Active Substance: PANTOPRAZOLE
     Dosage: 20 MG, 1X/DAY
     Route: 048
     Dates: start: 20211230
  45. ACETAMINOPHEN [Concomitant]
     Active Substance: ACETAMINOPHEN
     Indication: Abdominal pain upper
     Dosage: 1 G, AS NEEDED
     Route: 048
     Dates: start: 20240221
  46. ACETAMINOPHEN [Concomitant]
     Active Substance: ACETAMINOPHEN
     Dosage: 1 G
     Route: 048
  47. PENTOXIFYLLINE [Concomitant]
     Active Substance: PENTOXIFYLLINE
     Dosage: 600 MG, 2X/DAY
     Route: 048
     Dates: start: 20230523
  48. PENTOXIFYLLINE [Concomitant]
     Active Substance: PENTOXIFYLLINE
     Dosage: 600 MG, 2X/DAY
     Route: 048
  49. ENEMA CASEN [PHOSPHORIC ACID SODIUM;SODIUM PHOSPHATE DIBASIC] [Concomitant]
     Indication: Constipation
     Dosage: 139 MG
     Route: 054
     Dates: start: 20240222
  50. ENEMA CASEN [PHOSPHORIC ACID SODIUM;SODIUM PHOSPHATE DIBASIC] [Concomitant]
     Dosage: 32 MG, AS NECESSARY, FREQUENCY TEXT:1
     Route: 054
     Dates: start: 20240222
  51. PROPOFOL [Concomitant]
     Active Substance: PROPOFOL
     Dosage: 250 MG, SINGLE
     Route: 042
     Dates: start: 20240806, end: 20240806
  52. PROPOFOL [Concomitant]
     Active Substance: PROPOFOL
     Dosage: 250 MG, 1X/DAY
     Route: 042
  53. ROSUVASTATIN [Concomitant]
     Active Substance: ROSUVASTATIN
     Indication: Dyslipidaemia
     Dosage: 10 MG, 1X/DAY
     Route: 048
     Dates: start: 20211221
  54. ROSUVASTATIN [Concomitant]
     Active Substance: ROSUVASTATIN
     Dosage: 10 MG, 1X/DAY
     Route: 048
  55. RUTIN [Concomitant]
     Active Substance: RUTIN
     Indication: Gingival bleeding
     Dosage: 0.2 MG, AS NEEDED
     Route: 061
     Dates: start: 20240527
  56. RUTIN [Concomitant]
     Active Substance: RUTIN
     Indication: Epistaxis
     Dosage: 0.2 MG (LIQUID)
     Route: 061
  57. SACUBITRIL [Concomitant]
     Active Substance: SACUBITRIL
     Dosage: 24 MG, 2X/DAY
     Route: 048
     Dates: start: 20211221
  58. SACUBITRIL [Concomitant]
     Active Substance: SACUBITRIL
     Dosage: 24 MG, 2X/DAY
     Route: 048
  59. SODIUM CITRATE [Concomitant]
     Active Substance: SODIUM CITRATE
     Indication: Constipation
     Dosage: 450 MG
     Route: 054
     Dates: start: 20240217, end: 20240220
  60. SODIUM LAURYL SULFOACETATE [Concomitant]
     Active Substance: SODIUM LAURYL SULFOACETATE
     Indication: Constipation
     Dosage: 45 MG, AS NEEDED
     Route: 054
     Dates: start: 20240217, end: 20240220
  61. TORSEMIDE [Concomitant]
     Active Substance: TORSEMIDE
     Dosage: 5 MG, 1X/DAY
     Route: 048
     Dates: start: 20231221
  62. TORSEMIDE [Concomitant]
     Active Substance: TORSEMIDE
     Dosage: 5 MG, 1X/DAY
     Route: 048
  63. VALSARTAN [Concomitant]
     Active Substance: VALSARTAN
     Dosage: 26 MG, 2X/DAY
     Route: 048
     Dates: start: 20211221
  64. VALSARTAN [Concomitant]
     Active Substance: VALSARTAN
     Dosage: 26 MG, 2X/DAY
     Route: 048
  65. AMOXICILLIN [Concomitant]
     Active Substance: AMOXICILLIN
     Dosage: 875 MG, 3X/DAY
     Route: 048
     Dates: start: 20240808, end: 20240828
  66. AMOXICILLIN [Concomitant]
     Active Substance: AMOXICILLIN
     Dosage: 20 MG, 1X/DAY
     Route: 042
     Dates: start: 20240808, end: 20240808
  67. SORAFENIB [Concomitant]
     Active Substance: SORAFENIB
     Indication: Hepatic cancer
     Dosage: UNK
     Route: 048
     Dates: start: 20240905

REACTIONS (2)
  - Hyperthyroidism [Not Recovered/Not Resolved]
  - Off label use [Unknown]

NARRATIVE: CASE EVENT DATE: 20240404
